FAERS Safety Report 8311166-5 (Version None)
Quarter: 2012Q2

REPORT INFORMATION
  Report Type: 
  Country: None (occurrence: None)
  Receive Date: 20120425
  Receipt Date: 20120418
  Transmission Date: 20120825
  Serious: Yes (Death)
  Sender: FDA-Public Use
  Company Number: US-JNJFOC-20120408356

PATIENT

DRUGS (4)
  1. CYTARABINE [Suspect]
     Indication: ACUTE MYELOID LEUKAEMIA RECURRENT
     Route: 042
  2. IMATINIB MESYLATE [Suspect]
     Indication: ACUTE MYELOID LEUKAEMIA RECURRENT
     Route: 048
  3. NEUPOGEN [Suspect]
     Indication: ACUTE MYELOID LEUKAEMIA RECURRENT
     Route: 058
  4. CLADRIBINE [Suspect]
     Indication: ACUTE MYELOID LEUKAEMIA RECURRENT
     Route: 042

REACTIONS (1)
  - HEPATIC FAILURE [None]
